FAERS Safety Report 9548192 (Version 1)
Quarter: 2013Q3

REPORT INFORMATION
  Report Type: Spontaneous
  Country: US (occurrence: None)
  Receive Date: 20130923
  Receipt Date: 20130923
  Transmission Date: 20140515
  Serious: Yes (Hospitalization)
  Sender: FDA-Public Use
  Company Number: None

PATIENT
  Age: 71 Year
  Sex: Female
  Weight: 54.43 kg

DRUGS (1)
  1. AMBIEN [Suspect]
     Indication: INSOMNIA
     Dosage: 1 TABLET
     Route: 048
     Dates: start: 20130420, end: 20130812

REACTIONS (17)
  - Drug effect decreased [None]
  - Bladder spasm [None]
  - Gastrointestinal disorder [None]
  - Malaise [None]
  - Insomnia [None]
  - Parosmia [None]
  - Dizziness [None]
  - Bladder discomfort [None]
  - Bladder pain [None]
  - Urinary retention [None]
  - Nausea [None]
  - Nightmare [None]
  - Pain [None]
  - Diplopia [None]
  - Confusional state [None]
  - Sleep disorder [None]
  - Hyperacusis [None]
